FAERS Safety Report 8403384 (Version 4)
Quarter: 2013Q2

REPORT INFORMATION
  Report Type: Report from Study
  Country: CA (occurrence: CA)
  Receive Date: 20120213
  Receipt Date: 20130606
  Transmission Date: 20140414
  Serious: Yes (Death, Hospitalization, Other)
  Sender: FDA-Public Use
  Company Number: CA-ROCHE-1035790

PATIENT
  Age: 67 Year
  Sex: Female
  Weight: 50.85 kg

DRUGS (2)
  1. AVASTIN [Suspect]
     Indication: NEUROENDOCRINE CARCINOMA
     Route: 042
     Dates: end: 20120105
  2. AFINITOR [Concomitant]

REACTIONS (8)
  - Disease progression [Fatal]
  - General physical health deterioration [Unknown]
  - Dehydration [Recovered/Resolved]
  - Abdominal discomfort [Recovered/Resolved]
  - Renal impairment [Recovered/Resolved]
  - Electrolyte imbalance [Recovered/Resolved]
  - Ascites [Recovered/Resolved]
  - Laboratory test abnormal [Not Recovered/Not Resolved]
